FAERS Safety Report 6461988-0 (Version None)
Quarter: 2009Q4

REPORT INFORMATION
  Report Type: 
  Country: None (occurrence: None)
  Receive Date: 20091130
  Receipt Date: 20091110
  Transmission Date: 20100525
  Serious: Yes (Hospitalization)
  Sender: FDA-Public Use
  Company Number: US-SANOFI-AVENTIS-A03200904482

PATIENT
  Age: 63 Year
  Sex: Female
  Weight: 62.7 kg

DRUGS (4)
  1. CLOPIDOGREL BISULFATE [Suspect]
     Indication: HYPERTENSION
     Dosage: UNIT DOSE: 75 MG
     Route: 048
     Dates: start: 20080301
  2. CLOPIDOGREL BISULFATE [Suspect]
     Indication: THROMBOSIS PROPHYLAXIS
     Dosage: UNIT DOSE: 75 MG
     Route: 048
     Dates: start: 20080301
  3. CLOPIDOGREL BISULFATE [Suspect]
     Dosage: UNIT DOSE: 75 MG
     Route: 048
     Dates: start: 20080301
  4. COZAAR [Concomitant]
     Route: 065
     Dates: start: 20080101

REACTIONS (4)
  - CONTUSION [None]
  - HIATUS HERNIA [None]
  - NAUSEA [None]
  - PAIN [None]
